FAERS Safety Report 24941516 (Version 1)
Quarter: 2025Q1

REPORT INFORMATION
  Report Type: Spontaneous
  Country: US (occurrence: US)
  Receive Date: 20250207
  Receipt Date: 20250207
  Transmission Date: 20250409
  Serious: No
  Sender: DR REDDYS
  Company Number: US-DRL-USA-USA/2025/01/001237

PATIENT
  Sex: Male
  Weight: 61.51 kg

DRUGS (3)
  1. JAVYGTOR [Suspect]
     Active Substance: SAPROPTERIN DIHYDROCHLORIDE
     Indication: Phenylketonuria
     Route: 048
  2. CLARITIN 10 MG CAPSULE [Concomitant]
     Indication: Product used for unknown indication
     Route: 065
  3. MYDAYIS 12.5 MG CPTP 24HR [Concomitant]
     Indication: Product used for unknown indication
     Route: 065

REACTIONS (1)
  - Acne [Unknown]
